FAERS Safety Report 21141304 (Version 1)
Quarter: 2022Q3

REPORT INFORMATION
  Report Type: Spontaneous
  Country: US (occurrence: US)
  Receive Date: 20220728
  Receipt Date: 20220728
  Transmission Date: 20221026
  Serious: No
  Sender: FDA-Public Use
  Company Number: US-BRISTOL-MYERS SQUIBB COMPANY-2022-081090

PATIENT
  Age: 76 Year
  Sex: Male
  Weight: 107.95 kg

DRUGS (1)
  1. POMALYST [Suspect]
     Active Substance: POMALIDOMIDE
     Indication: Plasma cell myeloma
     Route: 048
     Dates: start: 20220504

REACTIONS (6)
  - Nervousness [Unknown]
  - Alopecia [Unknown]
  - General physical condition abnormal [Unknown]
  - Penis disorder [Unknown]
  - Loss of libido [Unknown]
  - Anxiety [Unknown]
